FAERS Safety Report 7142536-9 (Version None)
Quarter: 2010Q4

REPORT INFORMATION
  Report Type: 
  Country: None (occurrence: None)
  Receive Date: 20101207
  Receipt Date: 20101130
  Transmission Date: 20110411
  Serious: Yes (Death, Hospitalization, Other)
  Sender: FDA-Public Use
  Company Number: US-CELGENEUS-163-21880-10091882

PATIENT
  Sex: Male

DRUGS (11)
  1. REVLIMID [Suspect]
     Indication: MULTIPLE MYELOMA
     Route: 048
     Dates: start: 20091106
  2. REVLIMID [Suspect]
     Route: 048
     Dates: start: 20100910
  3. DEXAMETHASONE [Concomitant]
     Route: 065
  4. DEXAMETHASONE [Concomitant]
     Route: 048
  5. VERAPAMIL [Concomitant]
     Route: 048
  6. BUMEX [Concomitant]
     Route: 065
  7. QUINAPRIL [Concomitant]
     Route: 048
  8. LEVOTHYROXINE SODIUM [Concomitant]
     Route: 065
  9. LORTAB [Concomitant]
     Indication: PAIN
     Dosage: 7.5/500MG
     Route: 065
  10. SIMVASTATIN [Concomitant]
     Route: 048
  11. ASPIRIN [Concomitant]
     Route: 065

REACTIONS (3)
  - CONVULSION [None]
  - RENAL AMYLOIDOSIS [None]
  - THROMBOTIC THROMBOCYTOPENIC PURPURA [None]
